FAERS Safety Report 19172359 (Version 5)
Quarter: 2021Q3

REPORT INFORMATION
  Report Type: Spontaneous
  Country: NL (occurrence: NL)
  Receive Date: 20210423
  Receipt Date: 20210824
  Transmission Date: 20211014
  Serious: Yes (Death, Other)
  Sender: FDA-Public Use
  Company Number: NL-TEVA-2021-NL-1902942

PATIENT
  Age: 69 Year
  Sex: Male
  Weight: 77 kg

DRUGS (9)
  1. GLICLAZIDE TABLET MGA 80MG / BRAND NAME NOT SPECIFIED [Concomitant]
     Dosage: 80 MG (MILLIGRAM) ,THERAPY START DATE AND END DATE : ASKED BUT UNKNOWN
  2. INSULINE ASPART INJVLST 100E/ML / NOVORAPID INJVLST 100E/ML FLACON 10M [Concomitant]
     Dosage: 100 UNITS / ML (UNITS PER MILLILITER) , THERAPY START DATE AND END DATE : ASKED BUT UNKNOWN
  3. PREDNISON TABLET 5MG / BRAND NAME NOT SPECIFIED [Suspect]
     Active Substance: PREDNISONE
     Dosage: 1 DD 1,5 , THERAPY END DATE : ASKED BUT UNKNOWN
     Route: 065
     Dates: start: 20141014
  4. INSULINE ISOFAAN INJSUSP 100IE/ML / INSULATARD INJ 100IE/ML FLACON 10M [Concomitant]
     Dosage: 100 IU / ML (UNITS PER MILLILITER) , THERAPY START DATE AND END DATE : ASKED BUT UNKNOWN
  5. METFORMINE TABLET MGA  500MG / BRAND NAME NOT SPECIFIED [Concomitant]
     Dosage: 500 MG (MILLIGRAM) ,THERAPY START DATE AND END DATE : ASKED BUT UNKNOWN
  6. TACROLIMUS CAPSULE 0,5MG / PROGRAFT CAPSULE 0,5MG [Suspect]
     Active Substance: TACROLIMUS
     Dosage: 2D1?TACROLIMUS CAPSULE 0,5MG / PROGRAFT CAPSULE 0,5MG
     Route: 065
     Dates: start: 20151013, end: 20210401
  7. CARVEDILOL TABLET 25MG / CARVEDILOL TEVA TABLET 25MG [Concomitant]
     Dosage: 12,5 MG (MILLIGRAM) , THERAPY START DATE AND END DATE : ASKED BUT UNKNOWN
  8. PANTOPRAZOL TABLET MSR 20MG / PANTOPRAZOL PENSA TABLET MSR 20MG [Concomitant]
     Dosage: 40 MG (MILLIGRAM) , THERAPY START DATE AND END DATE : ASKED BUT UNKNOWN
  9. IRBESARTAN TABLET 150MG / APROVEL TABLET FILMOMHULD 150MG [Concomitant]
     Dosage: 150 MG (MILLIGRAM) ,THERAPY START DATE AND END DATE : ASKED BUT UNKNOWN

REACTIONS (7)
  - Pancytopenia [Unknown]
  - Thrombocytopenia [Unknown]
  - Hyperammonaemia [Fatal]
  - Metabolic encephalopathy [Fatal]
  - Aggression [Unknown]
  - Confusional state [Unknown]
  - Loss of consciousness [Unknown]

NARRATIVE: CASE EVENT DATE: 20210326
